FAERS Safety Report 8784287 (Version 5)
Quarter: 2012Q4

REPORT INFORMATION
  Report Type: Report from Study
  Country: JP (occurrence: JP)
  Receive Date: 20120913
  Receipt Date: 20121227
  Transmission Date: 20130627
  Serious: Yes (Hospitalization, Other)
  Sender: FDA-Public Use
  Company Number: JP-VERTEX PHARMACEUTICAL INC.-AE-2012-006746

PATIENT
  Age: 61 Year
  Sex: Female

DRUGS (12)
  1. VX-950 (TELAPREVIR) [Suspect]
     Indication: CHRONIC HEPATITIS C
     Dosage: 2250 mg, qd
     Route: 048
     Dates: start: 20120405, end: 20120426
  2. VX-950 (TELAPREVIR) [Suspect]
     Dosage: 1500 mg, qd
     Route: 048
     Dates: start: 20120427, end: 20120502
  3. VX-950 (TELAPREVIR) [Suspect]
     Dosage: 1500 mg, qd
     Route: 048
     Dates: start: 20120822, end: 20120823
  4. REBETOL [Suspect]
     Indication: CHRONIC HEPATITIS C
     Dosage: 600 mg, qd
     Route: 048
     Dates: start: 20120405, end: 20120426
  5. REBETOL [Suspect]
     Dosage: 400 mg, qd
     Route: 048
     Dates: start: 20120427, end: 20120517
  6. REBETOL [Suspect]
     Dosage: 200 mg, qd
     Route: 048
     Dates: start: 20120518
  7. PEGINTRON                          /01543001/ [Concomitant]
     Dosage: 1.5 ?g/kg, qw
     Route: 058
     Dates: start: 20120405, end: 20120502
  8. PEGINTRON                          /01543001/ [Concomitant]
     Dosage: 1.2 ?g/kg, qw
     Route: 058
     Dates: start: 20120509
  9. GLYCYRON                           /00466401/ [Concomitant]
     Dosage: 6 DF, qd
     Route: 048
  10. ALLEGRA [Concomitant]
     Dosage: 120 mg, qd
     Route: 048
     Dates: end: 20120606
  11. LOXOPROFEN [Concomitant]
     Dosage: 60 mg, prn
     Route: 048
  12. MUCOSTA [Concomitant]
     Dosage: 100 mg, prn
     Route: 048

REACTIONS (3)
  - Erythema multiforme [Recovered/Resolved]
  - Rash generalised [Recovered/Resolved]
  - Haemoglobin decreased [Recovered/Resolved]
